FAERS Safety Report 13116733 (Version 1)
Quarter: 2017Q1

REPORT INFORMATION
  Report Type: Report from Study
  Country: GB (occurrence: GB)
  Receive Date: 20170116
  Receipt Date: 20170116
  Transmission Date: 20170428
  Serious: Yes (Hospitalization, Other)
  Sender: FDA-Public Use
  Company Number: GB-AMGEN-GBRSL2017005144

PATIENT
  Age: 81 Year
  Sex: Male

DRUGS (2)
  1. ARANESP [Suspect]
     Active Substance: DARBEPOETIN ALFA
     Indication: PRODUCT USED FOR UNKNOWN INDICATION
     Dosage: 40 MUG, UNK
     Route: 065
  2. IRON [Concomitant]
     Active Substance: IRON

REACTIONS (5)
  - Arteriovenous fistula operation [Unknown]
  - Arthropathy [Not Recovered/Not Resolved]
  - Renal disorder [Recovered/Resolved]
  - Cellulitis [Unknown]
  - Arteriovenous fistula site complication [Unknown]

NARRATIVE: CASE EVENT DATE: 2013
